FAERS Safety Report 20628840 (Version 1)
Quarter: 2022Q1

REPORT INFORMATION
  Report Type: Report from Study
  Country: NL (occurrence: None)
  Receive Date: 20220323
  Receipt Date: 20220323
  Transmission Date: 20220423
  Serious: Yes (Hospitalization, Other)
  Sender: FDA-Public Use
  Company Number: 2022A115444

PATIENT
  Age: 53 Year
  Sex: Female

DRUGS (27)
  1. DURVALUMAB [Suspect]
     Active Substance: DURVALUMAB
     Indication: Non-small cell lung cancer
     Route: 042
     Dates: start: 20211021, end: 20211021
  2. DURVALUMAB [Suspect]
     Active Substance: DURVALUMAB
     Indication: Non-small cell lung cancer
     Route: 042
     Dates: start: 20211111, end: 20211111
  3. DURVALUMAB [Suspect]
     Active Substance: DURVALUMAB
     Indication: Non-small cell lung cancer
     Route: 042
     Dates: start: 20211202, end: 20211202
  4. DURVALUMAB [Suspect]
     Active Substance: DURVALUMAB
     Indication: Non-small cell lung cancer
     Route: 042
     Dates: start: 20211223, end: 20211223
  5. CARBOPLATIN [Suspect]
     Active Substance: CARBOPLATIN
     Indication: Non-small cell lung cancer
     Dates: start: 20211021, end: 20211021
  6. CARBOPLATIN [Suspect]
     Active Substance: CARBOPLATIN
     Indication: Non-small cell lung cancer
     Dates: start: 20211111, end: 20211111
  7. CARBOPLATIN [Suspect]
     Active Substance: CARBOPLATIN
     Indication: Non-small cell lung cancer
     Dates: start: 20211202, end: 20211202
  8. CARBOPLATIN [Suspect]
     Active Substance: CARBOPLATIN
     Indication: Non-small cell lung cancer
     Dates: start: 20211223, end: 20211223
  9. PEMETREXED [Suspect]
     Active Substance: PEMETREXED
     Indication: Non-small cell lung cancer
     Dates: start: 20211021, end: 20211021
  10. PEMETREXED [Suspect]
     Active Substance: PEMETREXED
     Indication: Non-small cell lung cancer
     Dates: start: 20211111, end: 20211111
  11. PEMETREXED [Suspect]
     Active Substance: PEMETREXED
     Indication: Non-small cell lung cancer
     Dates: start: 20211202, end: 20211202
  12. PEMETREXED [Suspect]
     Active Substance: PEMETREXED
     Indication: Non-small cell lung cancer
     Dates: start: 20211223, end: 20211223
  13. OXYCODONE [Concomitant]
     Active Substance: OXYCODONE
     Indication: Pain prophylaxis
     Dosage: 10.0 MG
     Route: 048
     Dates: start: 20220310
  14. OXYCODONE [Concomitant]
     Active Substance: OXYCODONE
     Indication: Oedema peripheral
     Dosage: 10.0 MG
     Route: 048
     Dates: start: 20220310
  15. MULTIVITAMIN: VITAMIN B1, B2, B3, B5, B6,B8 AND B12. VITAMIN B, C A... [Concomitant]
     Indication: Prophylaxis against HIV infection
     Dosage: 0.0 MG
     Route: 048
     Dates: start: 2020
  16. KURKUMA (CURCUMA LONGA) [Concomitant]
     Indication: Nutritional supplementation
     Dosage: 0.0 MG
     Route: 048
     Dates: start: 2020
  17. DYMISTA [Concomitant]
     Active Substance: AZELASTINE HYDROCHLORIDE\FLUTICASONE PROPIONATE
     Dosage: 50.0 OTHER
     Route: 045
     Dates: start: 201604
  18. FOSTER [Concomitant]
     Active Substance: BECLOMETHASONE\FORMOTEROL
     Indication: Asthma
     Dosage: 6.0 OTHER
     Route: 055
     Dates: start: 202104
  19. ALBUTEROL [Concomitant]
     Active Substance: ALBUTEROL
     Indication: Asthma
     Dosage: 6.0 OTHER
     Route: 055
     Dates: start: 202104
  20. ACETAMINOPHEN [Concomitant]
     Active Substance: ACETAMINOPHEN
     Indication: Oral pain
     Dosage: 500.0 MG
     Route: 048
     Dates: start: 20220308
  21. ACETAMINOPHEN [Concomitant]
     Active Substance: ACETAMINOPHEN
     Indication: Headache
     Dosage: 500.0 MG
     Route: 048
     Dates: start: 20220308
  22. PREDNISOLONE [Concomitant]
     Active Substance: PREDNISOLONE
     Indication: Diarrhoea
     Dosage: 30.0 MG
     Route: 048
     Dates: start: 20220203, end: 20220213
  23. PREDNISOLONE [Concomitant]
     Active Substance: PREDNISOLONE
     Indication: Diarrhoea
     Dosage: 20.0 MG
     Route: 048
     Dates: start: 20220213
  24. SULFAMETHOXAZOLE\TRIMETHOPRIM [Concomitant]
     Active Substance: SULFAMETHOXAZOLE\TRIMETHOPRIM
     Indication: Diarrhoea
     Dosage: 80.0 MG
     Route: 048
     Dates: start: 20220210
  25. ALENDRONIC ACID [Concomitant]
     Active Substance: ALENDRONIC ACID
     Indication: Diarrhoea
     Dosage: 70.0 MG
     Route: 048
     Dates: start: 20220210
  26. CALCIUMCARB CHEW [Concomitant]
     Indication: Diarrhoea
     Dosage: 2.5 G
     Route: 048
     Dates: start: 20220210
  27. FUROSEMIDE [Concomitant]
     Active Substance: FUROSEMIDE
     Indication: Oedema
     Dosage: 20.0 MG
     Route: 048
     Dates: start: 20220311, end: 20220313

REACTIONS (1)
  - Drug-induced liver injury [Not Recovered/Not Resolved]

NARRATIVE: CASE EVENT DATE: 20220315
